FAERS Safety Report 21788332 (Version 2)
Quarter: 2022Q4

REPORT INFORMATION
  Report Type: Report from Study
  Country: US (occurrence: US)
  Receive Date: 20221228
  Receipt Date: 20221228
  Transmission Date: 20230113
  Serious: Yes (Hospitalization, Other)
  Sender: FDA-Public Use
  Company Number: US-UCBSA-2022056131

PATIENT
  Age: 5 Year
  Sex: Female

DRUGS (4)
  1. FINTEPLA [Suspect]
     Active Substance: FENFLURAMINE
     Indication: Product used for unknown indication
     Dosage: 2.5 MILLILITER IN AM AND 3.4 MILLILITER IN PM
  2. FINTEPLA [Suspect]
     Active Substance: FENFLURAMINE
     Dosage: 2.5 MILLILITER IN AM AND 3.4 MILLILITER IN PM
  3. FINTEPLA [Suspect]
     Active Substance: FENFLURAMINE
     Dosage: 2ML AM AND 3.9ML PM
  4. BRIVIACT [Suspect]
     Active Substance: BRIVARACETAM
     Indication: Product used for unknown indication
     Dosage: UNK
     Dates: start: 2022, end: 2022

REACTIONS (9)
  - Seizure [Recovering/Resolving]
  - Upper respiratory tract infection [Not Recovered/Not Resolved]
  - Swollen tongue [Not Recovered/Not Resolved]
  - Lip swelling [Not Recovered/Not Resolved]
  - Throat irritation [Not Recovered/Not Resolved]
  - COVID-19 [Not Recovered/Not Resolved]
  - Weight decreased [Not Recovered/Not Resolved]
  - Therapeutic response unexpected [Recovering/Resolving]
  - Product use issue [Unknown]

NARRATIVE: CASE EVENT DATE: 20220919
